FAERS Safety Report 8156703-9 (Version None)
Quarter: 2012Q1

REPORT INFORMATION
  Report Type: 
  Country: None (occurrence: None)
  Receive Date: 20120217
  Receipt Date: 20120202
  Transmission Date: 20120608
  Serious: Yes (Death)
  Sender: FDA-Public Use
  Company Number: 2012020078

PATIENT
  Age: 46 Year
  Sex: Female

DRUGS (5)
  1. METHADONE HCL [Suspect]
     Route: 048
  2. ACETAMINOPHEN AND HYDROCODONE BITARTRATE [Suspect]
     Route: 048
  3. CLONAZEPAM [Suspect]
     Route: 048
  4. CARISOPRODOL (CARISOPRODOL) [Suspect]
     Route: 048
  5. ETHANOL (ETHANOL) [Suspect]
     Route: 048

REACTIONS (3)
  - CARDIAC ARREST [None]
  - INTENTIONAL DRUG MISUSE [None]
  - RESPIRATORY ARREST [None]
